FAERS Safety Report 16652988 (Version 8)
Quarter: 2021Q4

REPORT INFORMATION
  Report Type: Spontaneous
  Country: US (occurrence: US)
  Receive Date: 20190731
  Receipt Date: 20211119
  Transmission Date: 20220303
  Serious: Yes (Hospitalization, Other)
  Sender: FDA-Public Use
  Company Number: US-TEVA-2019-US-1084409

PATIENT
  Age: 59 Year
  Sex: Female
  Weight: 91 kg

DRUGS (39)
  1. VALSARTAN [Suspect]
     Active Substance: VALSARTAN
     Indication: Hypertension
     Route: 048
     Dates: start: 20150116, end: 20150812
  2. VALSARTAN [Suspect]
     Active Substance: VALSARTAN
     Route: 048
     Dates: start: 20150812, end: 20160217
  3. VALSARTAN [Suspect]
     Active Substance: VALSARTAN
     Indication: Hypertension
     Route: 048
     Dates: start: 20160524, end: 20180801
  4. VALSARTAN [Suspect]
     Active Substance: VALSARTAN
     Indication: Hypertension
     Route: 048
     Dates: start: 20150130
  5. DIOVAN [Suspect]
     Active Substance: VALSARTAN
     Indication: Hypertension
     Route: 048
     Dates: start: 20120423, end: 20180923
  6. VALSARTAN [Suspect]
     Active Substance: VALSARTAN
     Indication: Hypertension
     Route: 048
     Dates: start: 20140730
  7. VALSARTAN [Suspect]
     Active Substance: VALSARTAN
     Indication: Hypertension
     Route: 048
  8. KLOR-CON M20 [Concomitant]
     Active Substance: POTASSIUM CHLORIDE
     Route: 048
     Dates: end: 20190610
  9. SYNTHROID [Concomitant]
     Active Substance: LEVOTHYROXINE SODIUM
     Dosage: 100MCG
     Route: 048
  10. SYNTHROID [Concomitant]
     Active Substance: LEVOTHYROXINE SODIUM
     Route: 048
     Dates: start: 20161205, end: 20161227
  11. SYNTHROID [Concomitant]
     Active Substance: LEVOTHYROXINE SODIUM
     Route: 048
     Dates: start: 20170102
  12. LIPITOR [Concomitant]
     Active Substance: ATORVASTATIN CALCIUM
     Dosage: EVERY EVENING
     Route: 048
     Dates: start: 20161217, end: 20170508
  13. COREG [Concomitant]
     Active Substance: CARVEDILOL
     Route: 048
     Dates: start: 20161217
  14. COREG [Concomitant]
     Active Substance: CARVEDILOL
     Route: 048
     Dates: end: 20161227
  15. COUMADIN [Concomitant]
     Active Substance: WARFARIN SODIUM
     Route: 048
  16. LASIX [Concomitant]
     Active Substance: FUROSEMIDE
     Dosage: 40MG
     Route: 048
     Dates: end: 20190610
  17. LASIX [Concomitant]
     Active Substance: FUROSEMIDE
     Route: 048
     Dates: start: 20200608
  18. PROMETHAZINE-DM [Concomitant]
     Dosage: 6.25-15 MG/5 ML- TAKE ONE TEASPOON (5ML) BY MOUTH THREE TIMES DAILY
     Route: 048
     Dates: start: 20161220, end: 20170413
  19. CHOLECALCIFEROL [Concomitant]
     Active Substance: CHOLECALCIFEROL
     Route: 048
  20. VYTORIN [Concomitant]
     Active Substance: EZETIMIBE\SIMVASTATIN
     Dosage: 10-40MG
     Route: 048
     Dates: end: 20161227
  21. TEKTURNA [Concomitant]
     Active Substance: ALISKIREN HEMIFUMARATE
     Dosage: 150MG AND 300MG
  22. NITROSTAT [Concomitant]
     Active Substance: NITROGLYCERIN
     Dosage: PLACE 0.4 MG UNDER THE TONGUE EVERY 5 MINUTES AS NEEDED
     Route: 060
  23. AMOXIL [Concomitant]
     Active Substance: AMOXICILLIN
     Route: 048
     Dates: start: 20161226, end: 20170123
  24. ZYRTEC [Concomitant]
     Active Substance: CETIRIZINE HYDROCHLORIDE
     Route: 048
     Dates: end: 20170413
  25. BIAXIN [Concomitant]
     Active Substance: CLARITHROMYCIN
     Route: 048
     Dates: start: 20161226, end: 20170123
  26. DESOWEN [Concomitant]
     Active Substance: DESONIDE
     Dosage: 60G
     Route: 061
     Dates: start: 20130812, end: 20170713
  27. LEVAQUIN [Concomitant]
     Active Substance: LEVOFLOXACIN
     Route: 048
     Dates: start: 20150202, end: 20161227
  28. TYLENOL [Concomitant]
     Active Substance: ACETAMINOPHEN
     Indication: Pain prophylaxis
     Route: 048
     Dates: start: 20180210
  29. NORVASC [Concomitant]
     Active Substance: AMLODIPINE BESYLATE
     Route: 048
     Dates: start: 20190813
  30. LOVENOX [Concomitant]
     Active Substance: ENOXAPARIN SODIUM
     Route: 058
  31. ZETIA [Concomitant]
     Active Substance: EZETIMIBE
     Route: 048
     Dates: start: 20200706
  32. BENICAR [Concomitant]
     Active Substance: OLMESARTAN MEDOXOMIL
     Route: 048
     Dates: start: 20200217, end: 20210216
  33. CRESTOR [Concomitant]
     Active Substance: ROSUVASTATIN CALCIUM
     Dosage: TAKE 40 MG BY MOUTH EVERY EVENING
     Route: 048
     Dates: start: 20180104
  34. COLACE [Concomitant]
     Active Substance: DOCUSATE SODIUM
     Route: 048
     Dates: start: 20170218, end: 20170413
  35. FLONASE [Concomitant]
     Active Substance: FLUTICASONE PROPIONATE
     Indication: Prophylaxis
     Dosage: 1 SPRAY BY EACH NASAL ROUTE DAILY AS NEEDED FOR RHINITIS OR ALLERGIES- EACH NOSTRIL
     Route: 045
     Dates: start: 20170209, end: 20170413
  36. PERCOCET [Concomitant]
     Active Substance: ACETAMINOPHEN\OXYCODONE HYDROCHLORIDE
     Indication: Pain prophylaxis
     Dosage: 5/325 MG TAKE 1-2 TABLETS BY MOUTH EVERY 4 HOURS AS NEEDED FOR PAIN
     Route: 048
     Dates: start: 20170218, end: 20170413
  37. MYCOSTATIN [Concomitant]
     Active Substance: NYSTATIN
     Dosage: APPLY TID TO LABIA
     Route: 061
     Dates: start: 20121213, end: 20140506
  38. XANAX [Concomitant]
     Active Substance: ALPRAZOLAM
     Indication: Insomnia
     Dosage: TAKE 1 TABLET (0.5 MG TOTAL) BY MOUTH 2 (TWO) TIMES DAILY AS NEEDED
     Route: 048
     Dates: start: 20121213, end: 20140506
  39. XANAX [Concomitant]
     Active Substance: ALPRAZOLAM
     Indication: Anxiety

REACTIONS (1)
  - Renal cell carcinoma [Recovered/Resolved]
